FAERS Safety Report 19049044 (Version 1)
Quarter: 2021Q1

REPORT INFORMATION
  Report Type: Spontaneous
  Country: US (occurrence: US)
  Receive Date: 20210323
  Receipt Date: 20210323
  Transmission Date: 20210420
  Serious: No
  Sender: FDA-Public Use
  Company Number: US-GALDERMA-US2021000151

PATIENT
  Sex: Female

DRUGS (1)
  1. DIFFERIN GEL [Suspect]
     Active Substance: ADAPALENE
     Indication: ACNE
     Dosage: 0.1%
     Route: 061
     Dates: start: 202012

REACTIONS (6)
  - Dry skin [Unknown]
  - Drug ineffective [Unknown]
  - Skin irritation [Unknown]
  - Skin tightness [Unknown]
  - Erythema [Unknown]
  - Acne [Unknown]

NARRATIVE: CASE EVENT DATE: 202012
